FAERS Safety Report 24122681 (Version 5)
Quarter: 2024Q3

REPORT INFORMATION
  Report Type: Spontaneous
  Country: JP (occurrence: JP)
  Receive Date: 20240723
  Receipt Date: 20240920
  Transmission Date: 20241016
  Serious: Yes (Death, Hospitalization, Other)
  Sender: GENMAB
  Company Number: JP-GENMAB-2024-02190AA

PATIENT
  Age: 46 Year
  Sex: Male
  Weight: 76 kg

DRUGS (9)
  1. EPKINLY [Suspect]
     Active Substance: EPCORITAMAB-BYSP
     Indication: Diffuse large B-cell lymphoma
     Dosage: 0.16 MILLIGRAM, SINGLE
     Route: 058
     Dates: start: 20240610, end: 20240610
  2. EPKINLY [Suspect]
     Active Substance: EPCORITAMAB-BYSP
     Dosage: 0.8 MILLIGRAM, SINGLE
     Route: 058
     Dates: start: 20240617, end: 20240617
  3. EPKINLY [Suspect]
     Active Substance: EPCORITAMAB-BYSP
     Dosage: UNK, CYCLE 2
     Route: 058
     Dates: start: 202407, end: 202407
  4. DECADRON [Concomitant]
     Active Substance: DEXAMETHASONE
     Indication: Prophylaxis
     Dosage: 16 MILLIGRAM, ON DAY 1, DAY 2, DAY 3 AND DAY 4, THE FIRST AND THE SECOND DOSE IN CYCLE 1 AND THE FIR
     Dates: start: 20240610, end: 202407
  5. DEXAMETHASONE SODIUM PHOSPHATE [Concomitant]
     Active Substance: DEXAMETHASONE PHOSPHATE\DEXAMETHASONE SODIUM PHOSPHATE
     Indication: Prophylaxis
     Dosage: 26.4 MILLIGRAM, ON DAY 1, DAY 2, DAY 3 AND DAY 4, THE SECOND DOSE IN CYCLE 2 OF EPKINLY
     Dates: start: 202407, end: 202407
  6. POLARAMINE [Concomitant]
     Active Substance: DEXCHLORPHENIRAMINE MALEATE
     Indication: Prophylaxis
     Dosage: 4 MILLIGRAM, THE FIRST AND THE SECOND DOSE IN CYCLE 1 AND THE FIRST AND THE SECOND DOSE IN CYCLE 2 O
     Dates: start: 20240610, end: 202407
  7. ACETAMINOPHEN [Concomitant]
     Active Substance: ACETAMINOPHEN
     Indication: Prophylaxis
     Dosage: 1000 MILLIGRAM, ON DAY1, THE FIRST AND THE SECOND DOSE IN CYCLE 1 AND THE FIRST AND THE SECOND DOSE
     Dates: start: 20240610, end: 202407
  8. DEXTROSE\SODIUM CHLORIDE\SODIUM LACTATE [Concomitant]
     Active Substance: DEXTROSE\SODIUM CHLORIDE\SODIUM LACTATE
     Indication: Prophylaxis
     Dosage: 1000 MILLILITER, ON DAY1, THE FIRST AND THE SECOND DOSE IN CYCLE 1 OF EPKINLY
     Dates: start: 20240610, end: 20240617
  9. RINACETO F [Concomitant]
     Indication: Prophylaxis
     Dosage: 1500 MILLILITER, THE FIRST AND THE SECOND DOSE IN CYCLE 2 OF EPKINLY
     Dates: start: 20240701, end: 20240708

REACTIONS (3)
  - Haematotoxicity [Not Recovered/Not Resolved]
  - Cytokine release syndrome [Recovered/Resolved]
  - Diffuse large B-cell lymphoma [Fatal]

NARRATIVE: CASE EVENT DATE: 20240101
